FAERS Safety Report 10913551 (Version 1)
Quarter: 2015Q1

REPORT INFORMATION
  Report Type: Spontaneous
  Country: US (occurrence: US)
  Receive Date: 20150313
  Receipt Date: 20150313
  Transmission Date: 20150721
  Serious: Yes (Other)
  Sender: FDA-Public Use
  Company Number: US-BAYER-2015-035861

PATIENT
  Sex: Female

DRUGS (1)
  1. MIRENA [Suspect]
     Active Substance: LEVONORGESTREL
     Dosage: 20 MCG/24HR, CONT
     Route: 015
     Dates: end: 20150212

REACTIONS (6)
  - Amenorrhoea [None]
  - Mood altered [None]
  - Emotional disorder [None]
  - Post procedural haemorrhage [None]
  - Vaginal haemorrhage [None]
  - Device misuse [None]

NARRATIVE: CASE EVENT DATE: 20150213
